FAERS Safety Report 8275834-6 (Version None)
Quarter: 2012Q2

REPORT INFORMATION
  Report Type: 
  Country: None (occurrence: None)
  Receive Date: 20120410
  Receipt Date: 20120410
  Transmission Date: 20120825
  Serious: Yes (Hospitalization)
  Sender: FDA-Public Use
  Company Number: None

PATIENT
  Sex: Female
  Weight: 63.4 kg

DRUGS (19)
  1. BENADRYL [Concomitant]
  2. CLARITIN [Concomitant]
  3. LIDOCAINE [Concomitant]
  4. NEXIUM [Concomitant]
  5. ONDANSETRON [Concomitant]
  6. AMBIEN [Concomitant]
  7. FLAXSEED [Concomitant]
  8. NORVASC [Concomitant]
  9. IXEMPRA KIT [Suspect]
     Indication: BREAST CANCER
     Dosage: 16MG/M2 IV D 2, 9+16
     Route: 042
     Dates: start: 20110920, end: 20120307
  10. PRILOCAINE HYDROCHLORIDE [Concomitant]
  11. POTASSIUM [Concomitant]
  12. M.V.I. [Concomitant]
  13. VICODIN [Concomitant]
  14. ATENOLOL [Concomitant]
  15. CALCIUM/VITAMIN D [Concomitant]
  16. DIPHENHYDRAMINE HCL [Concomitant]
  17. VITAMIN B COMPLEX CAP [Concomitant]
  18. VORINOSTAT [Suspect]
     Indication: BREAST CANCER
     Dosage: 300MGPO DAILY D1-7+15-21
     Route: 048
     Dates: start: 20110919, end: 20120312
  19. THERATUSSIN [Concomitant]

REACTIONS (5)
  - PYREXIA [None]
  - SNEEZING [None]
  - PRODUCTIVE COUGH [None]
  - RHINORRHOEA [None]
  - BACTERAEMIA [None]
